FAERS Safety Report 16264624 (Version 1)
Quarter: 2019Q2

REPORT INFORMATION
  Report Type: Spontaneous
  Country: US (occurrence: US)
  Receive Date: 20190502
  Receipt Date: 20190502
  Transmission Date: 20190711
  Serious: No
  Sender: FDA-Public Use
  Company Number: US-PFIZER INC-2019054315

PATIENT
  Age: 60 Year
  Sex: Female
  Weight: 60.78 kg

DRUGS (2)
  1. LYRICA [Suspect]
     Active Substance: PREGABALIN
     Dosage: 50 MG, 2X/DAY (1 CAPSULE TWICE A DAY 30 DAYS)
     Route: 048
  2. LYRICA [Suspect]
     Active Substance: PREGABALIN
     Indication: LUMBAR RADICULOPATHY
     Dosage: 50 MG, DAILY
     Route: 048

REACTIONS (6)
  - Skeletal injury [Unknown]
  - Gait disturbance [Unknown]
  - Product use issue [Unknown]
  - Malaise [Unknown]
  - Body height decreased [Unknown]
  - Pain [Unknown]
